FAERS Safety Report 9516331 (Version 1)
Quarter: 2013Q1

REPORT INFORMATION
  Report Type: Spontaneous
  Country: US (occurrence: None)
  Receive Date: 20130305
  Receipt Date: 20130305
  Transmission Date: 20140127
  Serious: Yes (Hospitalization)
  Sender: FDA-Public Use
  Company Number: 163-21880-12081296

PATIENT
  Age: 49 Year
  Sex: Female

DRUGS (6)
  1. REVLIMID [Suspect]
     Indication: PLASMA CELL MYELOMA
     Dosage: 21 IN 28
     Route: 048
     Dates: start: 20120719, end: 20120808
  2. ACYCLOVIR [Concomitant]
  3. ASA [Concomitant]
  4. ATENOLOL [Concomitant]
  5. ESCITALOPRAM [Concomitant]
  6. LOSARTAN [Concomitant]

REACTIONS (1)
  - Atypical pneumonia [None]
